FAERS Safety Report 10170849 (Version 1)
Quarter: 2014Q2

REPORT INFORMATION
  Report Type: Spontaneous
  Country: TR (occurrence: TR)
  Receive Date: 20140514
  Receipt Date: 20140514
  Transmission Date: 20141212
  Serious: Yes (Life-Threatening, Other)
  Sender: FDA-Public Use
  Company Number: TR-009507513-1405TUR005422

PATIENT
  Age: 51 Year
  Sex: Female
  Weight: 80 kg

DRUGS (3)
  1. TEMODAL [Suspect]
     Indication: MALIGNANT MELANOMA
     Dosage: 285 MG, QD
     Route: 048
     Dates: start: 20140220, end: 20140425
  2. TRAMADOL HYDROCHLORIDE [Concomitant]
     Dosage: 100 MG, QD
     Route: 048
  3. FENTANYL [Concomitant]
     Dosage: 100 MG, QD
     Route: 062

REACTIONS (2)
  - Endotracheal intubation [Unknown]
  - Peripheral sensorimotor neuropathy [Not Recovered/Not Resolved]
